FAERS Safety Report 8663540 (Version 2)
Quarter: 2012Q4

REPORT INFORMATION
  Report Type: Report from Study
  Country: CA (occurrence: CA)
  Receive Date: 20120713
  Receipt Date: 20120828
  Transmission Date: 20130627
  Serious: Yes (Hospitalization)
  Sender: FDA-Public Use
  Company Number: CA-JNJFOC-20120702627

PATIENT
  Age: 68 None
  Sex: Female
  Weight: 46.4 kg

DRUGS (15)
  1. REMICADE [Suspect]
     Indication: RHEUMATOID ARTHRITIS
     Route: 042
     Dates: start: 20081128
  2. CLAVULIN [Concomitant]
     Route: 065
  3. MTX [Concomitant]
     Route: 065
  4. ADVAIR [Concomitant]
     Route: 065
  5. SINGULAIR [Concomitant]
     Route: 065
  6. PANTOLOC [Concomitant]
     Route: 065
  7. FOLIC ACID [Concomitant]
     Route: 065
  8. PREMARIN [Concomitant]
     Route: 065
  9. DIDROCAL [Concomitant]
     Route: 065
  10. CALCIUM [Concomitant]
     Route: 065
  11. VIT D [Concomitant]
     Route: 065
  12. PREDNISONE [Concomitant]
     Route: 065
  13. VITAMIN A+E [Concomitant]
     Route: 065
  14. SYNTHROID [Concomitant]
     Route: 065
  15. OXYCONTIN [Concomitant]
     Route: 065

REACTIONS (1)
  - Pneumonia [Recovered/Resolved]
